FAERS Safety Report 10227170 (Version 1)
Quarter: 2014Q2

REPORT INFORMATION
  Report Type: Spontaneous
  Country: IT (occurrence: IT)
  Receive Date: 20140610
  Receipt Date: 20140610
  Transmission Date: 20141212
  Serious: Yes (Death, Hospitalization)
  Sender: FDA-Public Use
  Company Number: IT-BAYER-2014-083313

PATIENT
  Age: 58 Year
  Sex: Male
  Weight: 85 kg

DRUGS (7)
  1. ACETYLSALICYLIC ACID({=100 MG) [Suspect]
     Indication: ANTIPLATELET THERAPY
     Dosage: UNK
  2. ACETYLSALICYLIC ACID({=100 MG) [Suspect]
     Indication: MYOCARDIAL INFARCTION
  3. PRASUGREL [Suspect]
     Indication: ANTIPLATELET THERAPY
     Dosage: UNK
  4. PRASUGREL [Suspect]
     Indication: MYOCARDIAL INFARCTION
  5. WARFARIN [Suspect]
     Indication: INTRACARDIAC THROMBUS
     Dosage: UNK
  6. BIVALIRUDIN [Concomitant]
     Indication: ANGIOPLASTY
  7. ABCIXIMAB [Concomitant]
     Indication: ANGIOPLASTY

REACTIONS (2)
  - Cerebral haemorrhage [Fatal]
  - Labelled drug-drug interaction medication error [Fatal]
